FAERS Safety Report 9736659 (Version 2)
Quarter: 2015Q3

REPORT INFORMATION
  Report Type: Spontaneous
  Country: US (occurrence: US)
  Receive Date: 20131206
  Receipt Date: 20150804
  Transmission Date: 20151125
  Serious: No
  Sender: FDA-Public Use
  Company Number: US-GILEAD-2009-0022856

PATIENT
  Age: 84 Year
  Sex: Female

DRUGS (15)
  1. SYMBICORT [Concomitant]
     Active Substance: BUDESONIDE\FORMOTEROL FUMARATE DIHYDRATE
  2. PROTONIX [Concomitant]
     Active Substance: PANTOPRAZOLE SODIUM
  3. LACTINEX GRANULES PACKET [Concomitant]
  4. PREDNISONE. [Concomitant]
     Active Substance: PREDNISONE
  5. CLONIDINE. [Concomitant]
     Active Substance: CLONIDINE
  6. NOVOLIN R [Concomitant]
     Active Substance: INSULIN HUMAN
  7. TYLENOL [Concomitant]
     Active Substance: ACETAMINOPHEN
  8. GLUCAGON. [Concomitant]
     Active Substance: GLUCAGON
  9. LORAZEPAM. [Concomitant]
     Active Substance: LORAZEPAM
  10. NYSTATIN. [Concomitant]
     Active Substance: NYSTATIN
  11. ATROVENT [Concomitant]
     Active Substance: IPRATROPIUM BROMIDE
  12. PARACETAMOL/HYDROCODONE BITARTRATE [Concomitant]
  13. XOPENEX [Concomitant]
     Active Substance: LEVALBUTEROL HYDROCHLORIDE
  14. DICYCLOMINE [Concomitant]
     Active Substance: DICYCLOMINE HYDROCHLORIDE
  15. LETAIRIS [Suspect]
     Active Substance: AMBRISENTAN
     Indication: PULMONARY ARTERIAL HYPERTENSION
     Route: 048
     Dates: start: 20090407

REACTIONS (2)
  - Fatigue [Unknown]
  - Dyspnoea [Unknown]
